FAERS Safety Report 15932099 (Version 2)
Quarter: 2019Q1

REPORT INFORMATION
  Report Type: Spontaneous
  Country: US (occurrence: US)
  Receive Date: 20190207
  Receipt Date: 20190212
  Transmission Date: 20190417
  Serious: No
  Sender: FDA-Public Use
  Company Number: US-PFIZER INC-2019046536

PATIENT
  Age: 26 Year
  Sex: Male
  Weight: 61.22 kg

DRUGS (2)
  1. VIAGRA [Suspect]
     Active Substance: SILDENAFIL CITRATE
     Dosage: 50 MG, UNK
  2. VIAGRA [Suspect]
     Active Substance: SILDENAFIL CITRATE
     Indication: ERECTILE DYSFUNCTION
     Dosage: 100 MG, AS NEEDED
     Dates: start: 201802

REACTIONS (6)
  - Abdominal pain upper [Not Recovered/Not Resolved]
  - Gastric disorder [Unknown]
  - Penis disorder [Not Recovered/Not Resolved]
  - Penile swelling [Not Recovered/Not Resolved]
  - Pruritus [Unknown]
  - Erection increased [Unknown]

NARRATIVE: CASE EVENT DATE: 20190130
